FAERS Safety Report 11557540 (Version 5)
Quarter: 2015Q4

REPORT INFORMATION
  Report Type: Spontaneous
  Country: NL (occurrence: NL)
  Receive Date: 20150926
  Receipt Date: 20151203
  Transmission Date: 20160304
  Serious: Yes (Hospitalization)
  Sender: FDA-Public Use
  Company Number: NL-009507513-1509NLD012991

PATIENT
  Age: 61 Year
  Sex: Female
  Weight: 88 kg

DRUGS (11)
  1. CLOZAPINE. [Concomitant]
     Active Substance: CLOZAPINE
     Dosage: ONCE PER WEEK ONE UNIT(S), ADDITIONAL INFORMATION: 25 MG
     Route: 048
  2. PLANTAGO OVATA POWDER [Concomitant]
     Dosage: ONCE PER DAY ONE UNIT(S)
     Route: 048
     Dates: start: 20000101
  3. METOPROLOL [Concomitant]
     Active Substance: METOPROLOL
     Dosage: ONCE PER DAY ONE UNIT(S)
     Route: 048
  4. PREDNISOLONE. [Concomitant]
     Active Substance: PREDNISOLONE
     Dosage: ONCE PER DAY ONE UNIT(S)
     Route: 048
     Dates: start: 19970101
  5. OMEPRAZOLE. [Concomitant]
     Active Substance: OMEPRAZOLE
     Dosage: ONCE PER DAY ONE UNIT(S)
     Route: 048
  6. NAPROXEN. [Concomitant]
     Active Substance: NAPROXEN
     Dosage: TWICE PER DAY ONE UNIT(S)
     Route: 048
  7. KALCIPOS D [Concomitant]
     Dosage: STRENGTH: 500MG/800IE. ONCE PER DAY ONE UNIT(S)
     Route: 048
  8. TRAMADOL HYDROCHLORIDE. [Concomitant]
     Active Substance: TRAMADOL HYDROCHLORIDE
     Dosage: THREE TIMES PER DAY ONE UNIT(S)
     Route: 048
  9. MEBEVERINE [Concomitant]
     Active Substance: MEBEVERINE
     Dosage: TWICE PER DAY ONE UNIT(S)
     Route: 048
  10. ALENDRONATE SODIUM. [Suspect]
     Active Substance: ALENDRONATE SODIUM
     Indication: OSTEOPOROSIS
     Dosage: ONCE PER WEEK ONE UNIT(S)
     Route: 048
     Dates: start: 19970101
  11. SPIRONOLACTONE. [Concomitant]
     Active Substance: SPIRONOLACTONE
     Dosage: ONCE PER DAY ONE UNIT(S)
     Route: 048

REACTIONS (1)
  - Scapula fracture [Recovering/Resolving]

NARRATIVE: CASE EVENT DATE: 20080101
